FAERS Safety Report 6878184-5 (Version None)
Quarter: 2010Q3

REPORT INFORMATION
  Report Type: 
  Country: None (occurrence: None)
  Receive Date: 20100728
  Receipt Date: 20100715
  Transmission Date: 20110219
  Serious: Yes (Other)
  Sender: FDA-Public Use
  Company Number: JP-PFIZER INC-2010088726

PATIENT
  Age: 60 Year
  Sex: Female

DRUGS (2)
  1. LYRICA [Suspect]
     Dosage: 75 MG, 1X/DAY
     Route: 048
  2. CRESTOR [Concomitant]
     Route: 048

REACTIONS (2)
  - CHEST DISCOMFORT [None]
  - NAUSEA [None]
